FAERS Safety Report 6688035-X (Version None)
Quarter: 2010Q2

REPORT INFORMATION
  Report Type: 
  Country: None (occurrence: None)
  Receive Date: 20100420
  Receipt Date: 20100407
  Transmission Date: 20101027
  Serious: Yes (Hospitalization, Other)
  Sender: FDA-Public Use
  Company Number: PHHY2010JP22283

PATIENT
  Age: 69 Year
  Sex: Female
  Weight: 40 kg

DRUGS (19)
  1. DIOVAN [Suspect]
     Dosage: 160 MG, QD
     Route: 048
     Dates: start: 20080925
  2. DECADRON [Suspect]
     Dosage: 40 MG DAILY
     Route: 042
     Dates: start: 20090730, end: 20090803
  3. DECADRON [Suspect]
     Dosage: 40 MG DAILY
     Route: 042
     Dates: start: 20090808, end: 20090811
  4. DECADRON [Suspect]
     Dosage: 40 MG DAILY
     Route: 042
     Dates: start: 20090816, end: 20090819
  5. ATELEC [Concomitant]
     Indication: HYPERTENSION
     Dosage: 10 MG, UNK
     Route: 048
     Dates: start: 20080925
  6. ALMARL [Concomitant]
     Indication: HYPERTENSION
     Dosage: 20 MG, UNK
     Route: 048
     Dates: start: 20070404, end: 20090408
  7. MICARDIS [Concomitant]
     Indication: HYPERTENSION
     Dosage: 80 MG, UNK
     Route: 048
     Dates: start: 20070508, end: 20080924
  8. AROTINOLOL HYDROCHLORIDE [Concomitant]
     Indication: HYPERTENSION
     Dosage: 20 MG, UNK
     Route: 048
     Dates: start: 20090409
  9. KLARICID [Concomitant]
     Dosage: 800 MG, UNK
     Route: 048
     Dates: start: 20090804, end: 20090810
  10. ENTOMOL [Concomitant]
     Dosage: 3 G, UNK
     Route: 048
     Dates: start: 20090804, end: 20090810
  11. GASTER D [Concomitant]
     Dosage: 20 MG, UNK
     Route: 048
     Dates: start: 20090813
  12. HUMULIN R [Concomitant]
     Dosage: 6 IU, UNK
     Route: 042
     Dates: start: 20090731
  13. HUMULIN R [Concomitant]
     Dosage: 6 IU, UNK
     Route: 042
     Dates: end: 20090819
  14. COTRIM [Concomitant]
     Dosage: 1 DF, UNK
     Route: 048
     Dates: start: 20090731
  15. LANSOPRAZOLE [Concomitant]
     Dosage: 60 MG, UNK
     Route: 048
     Dates: start: 20090805, end: 20090813
  16. SAWACILLIN [Concomitant]
     Dosage: 1500 MG, UNK
     Route: 048
     Dates: start: 20090804, end: 20090810
  17. PLETAL [Concomitant]
     Dosage: UNK
     Route: 048
     Dates: end: 20090730
  18. TAKEPRON [Concomitant]
     Dosage: 60 MG, UNK
     Route: 048
     Dates: end: 20090804
  19. WARFARIN SODIUM [Concomitant]
     Dosage: UNK
     Route: 048
     Dates: end: 20090827

REACTIONS (7)
  - ATRIAL FIBRILLATION [None]
  - HAEMORRHAGE SUBCUTANEOUS [None]
  - HELICOBACTER TEST POSITIVE [None]
  - HYPERGLYCAEMIA [None]
  - HYPOTENSION [None]
  - IDIOPATHIC THROMBOCYTOPENIC PURPURA [None]
  - PETECHIAE [None]
